FAERS Safety Report 14030901 (Version 1)
Quarter: 2017Q4

REPORT INFORMATION
  Report Type: Spontaneous
  Country: AU (occurrence: AU)
  Receive Date: 20171002
  Receipt Date: 20171002
  Transmission Date: 20180321
  Serious: Yes (Congenital Anomaly, Other)
  Sender: FDA-Public Use
  Company Number: AU-ORION CORPORATION ORION PHARMA-TREX2017-2962

PATIENT

DRUGS (1)
  1. METHOTREXATE (TRADE NAME UNKNOWN) [Suspect]
     Active Substance: METHOTREXATE
     Route: 064

REACTIONS (3)
  - Foetal malformation [Unknown]
  - Foetal exposure during pregnancy [Unknown]
  - Medication error [Unknown]
